FAERS Safety Report 6541597-5 (Version None)
Quarter: 2010Q1

REPORT INFORMATION
  Report Type: 
  Country: None (occurrence: None)
  Receive Date: 20100119
  Receipt Date: 20100114
  Transmission Date: 20100710
  Serious: Yes (Other)
  Sender: FDA-Public Use
  Company Number: IT-ROCHE-679719

PATIENT
  Sex: Male

DRUGS (2)
  1. XELODA [Suspect]
     Dosage: FREQUENCY:CYCLE
     Route: 065
  2. OXALIPLATIN [Suspect]
     Dosage: FREQUENCY:UNKNOWN (TRADE NAME NOT AVAILABLE)
     Route: 065

REACTIONS (1)
  - NERVOUS SYSTEM DISORDER [None]
